FAERS Safety Report 4372005-0 (Version None)
Quarter: 2004Q2

REPORT INFORMATION
  Report Type: 
  Country: None (occurrence: None)
  Receive Date: 20040602
  Receipt Date: 20040602
  Transmission Date: 20050107
  Serious: Yes (Hospitalization)
  Sender: FDA-Public Use
  Company Number: None

PATIENT
  Sex: Male
  Weight: 141 kg

DRUGS (12)
  1. CUBICIN [Suspect]
     Indication: INFECTION
     Dosage: 490 MG EVERY 24H INTRAVENOUS
     Route: 042
     Dates: start: 20040514, end: 20040528
  2. CUBICIN [Suspect]
     Indication: INFLAMMATION
     Dosage: 490 MG EVERY 24H INTRAVENOUS
     Route: 042
     Dates: start: 20040514, end: 20040528
  3. CUBICIN [Suspect]
     Indication: STAPHYLOCOCCAL SEPSIS
     Dosage: 490 MG EVERY 24H INTRAVENOUS
     Route: 042
     Dates: start: 20040514, end: 20040528
  4. CRESTOR [Concomitant]
  5. COUMADIN [Concomitant]
  6. GLUCOPHAGE [Concomitant]
  7. AVANDIA [Concomitant]
  8. PAXIL [Concomitant]
  9. DITROPAN XL [Concomitant]
  10. HYDROCODONE/ACETAMINOPHEN [Concomitant]
  11. LISINOPRIL [Concomitant]
  12. NYSTATIN [Concomitant]

REACTIONS (4)
  - ALANINE AMINOTRANSFERASE INCREASED [None]
  - ASPARTATE AMINOTRANSFERASE INCREASED [None]
  - BLOOD CREATININE INCREASED [None]
  - BLOOD UREA INCREASED [None]
